FAERS Safety Report 9508468 (Version 1)
Quarter: 2013Q1

REPORT INFORMATION
  Report Type: Spontaneous
  Country: US (occurrence: None)
  Receive Date: 20130305
  Receipt Date: 20130305
  Transmission Date: 20140127
  Serious: Yes (Hospitalization, Other)
  Sender: FDA-Public Use
  Company Number: 163-21880-11010404

PATIENT
  Age: 63 Year
  Sex: Male
  Weight: 60.2 kg

DRUGS (4)
  1. REVLIMID (LENALIDOMIDE) (25 MILLIGRAM, CAPSULES) [Suspect]
     Indication: DIFFUSE LARGE B-CELL LYMPHOMA
     Dosage: CAPSULE, 25 MG, 21 IN 28 D, PO
     Dates: start: 20100723, end: 201010
  2. ASPIRIN (ACETYLSALICYLIC ACID) [Concomitant]
  3. MAGNESIUM [Concomitant]
  4. FAMVIR (FAMCICLOVIR) [Concomitant]

REACTIONS (5)
  - Febrile neutropenia [None]
  - Bacteraemia [None]
  - Renal failure acute [None]
  - Thrombocytopenia [None]
  - Upper respiratory tract infection [None]
